FAERS Safety Report 7484991-0 (Version None)
Quarter: 2011Q2

REPORT INFORMATION
  Report Type: 
  Country: None (occurrence: None)
  Receive Date: 20110517
  Receipt Date: 20110509
  Transmission Date: 20111010
  Serious: Yes (Life-Threatening, Other)
  Sender: FDA-Public Use
  Company Number: US-ROCHE-770387

PATIENT
  Sex: Female
  Weight: 68 kg

DRUGS (4)
  1. PEGASYS [Suspect]
     Indication: HEPATITIS C
     Route: 058
     Dates: start: 20100903
  2. NEXIUM [Concomitant]
  3. DIOVAN HCT [Concomitant]
     Indication: HYPERTENSION
     Dosage: DOSE:80/12.5 DAILY
  4. RIBAVIRIN [Suspect]
     Indication: HEPATITIS C
     Dosage: 400 MG IN MORNING AND 600 MG IN EVENING
     Route: 065
     Dates: start: 20100903

REACTIONS (2)
  - SUICIDE ATTEMPT [None]
  - HOMICIDE [None]
